FAERS Safety Report 8490913-6 (Version None)
Quarter: 2012Q2

REPORT INFORMATION
  Report Type: 
  Country: None (occurrence: None)
  Receive Date: 20120629
  Receipt Date: 20120629
  Transmission Date: 20120825
  Serious: Yes (Other)
  Sender: FDA-Public Use
  Company Number: None

PATIENT
  Age: 15 Year
  Sex: Male

DRUGS (3)
  1. ERYTHROMYCIN [Concomitant]
  2. NUTROPIN [Suspect]
     Indication: GROWTH HORMONE DEFICIENCY
     Dosage: 6MG EVERY NIGHT SQ
     Route: 058
     Dates: start: 20070501, end: 20090101
  3. NUTROPIN [Suspect]
     Indication: GROWTH RETARDATION
     Dosage: 6MG EVERY NIGHT SQ
     Route: 058
     Dates: start: 20070501, end: 20090101

REACTIONS (6)
  - ALDOLASE INCREASED [None]
  - BLOOD CREATINE PHOSPHOKINASE INCREASED [None]
  - CONNECTIVE TISSUE DISORDER [None]
  - ANTINUCLEAR ANTIBODY POSITIVE [None]
  - PARAESTHESIA [None]
  - PALLOR [None]
